FAERS Safety Report 5234154-4 (Version None)
Quarter: 2007Q1

REPORT INFORMATION
  Report Type: 
  Country: None (occurrence: None)
  Receive Date: 20070209
  Receipt Date: 20070129
  Transmission Date: 20070707
  Serious: Yes (Hospitalization)
  Sender: FDA-Public Use
  Company Number: FR-ABBOTT-07P-056-0355332-00

PATIENT
  Age: 69 Year
  Sex: Female
  Weight: 70 kg

DRUGS (1)
  1. MONOZECLAR [Suspect]
     Indication: BRONCHITIS BACTERIAL
     Route: 048
     Dates: start: 20061014, end: 20061018

REACTIONS (3)
  - ASTHENIA [None]
  - PAIN [None]
  - PANCREATITIS ACUTE [None]
